FAERS Safety Report 9787109 (Version 1)
Quarter: 2013Q4

REPORT INFORMATION
  Report Type: Spontaneous
  Country: US (occurrence: US)
  Receive Date: 20131228
  Receipt Date: 20131228
  Transmission Date: 20140711
  Serious: No
  Sender: FDA-Public Use
  Company Number: US-009507513-1312USA009942

PATIENT
  Sex: Male

DRUGS (2)
  1. AZASITE [Suspect]
     Indication: BLEPHARITIS
     Dosage: 1 GTT, QD
     Route: 047
     Dates: start: 201304
  2. AZASITE [Suspect]
     Indication: CONJUNCTIVITIS BACTERIAL

REACTIONS (3)
  - Drug administration error [Unknown]
  - Inappropriate schedule of drug administration [Unknown]
  - No adverse event [Unknown]
